FAERS Safety Report 4802796-3 (Version None)
Quarter: 2005Q4

REPORT INFORMATION
  Report Type: 
  Country: None (occurrence: None)
  Receive Date: 20051019
  Receipt Date: 20050609
  Transmission Date: 20060501
  Serious: Yes (Disabling)
  Sender: FDA-Public Use
  Company Number: 2005CG01088

PATIENT
  Age: 53 Year
  Sex: Male
  Weight: 90 kg

DRUGS (5)
  1. MOPRAL [Suspect]
     Route: 048
  2. KARDEGIC [Suspect]
     Route: 048
  3. TAHOR [Suspect]
     Route: 048
     Dates: start: 20050103, end: 20050505
  4. PLAVIX [Suspect]
     Route: 048
  5. COVERSYL [Suspect]
     Route: 048

REACTIONS (1)
  - TENDON RUPTURE [None]
